FAERS Safety Report 17945608 (Version 1)
Quarter: 2020Q2

REPORT INFORMATION
  Report Type: Report from Study
  Country: None (occurrence: ES)
  Receive Date: 20200626
  Receipt Date: 20200626
  Transmission Date: 20200714
  Serious: Yes (Death)
  Sender: FDA-Public Use
  Company Number: ES-ABBVIE-20K-144-3460618-00

PATIENT
  Age: 55 Year
  Sex: Male
  Weight: 77 kg

DRUGS (1)
  1. DUODOPA [Suspect]
     Active Substance: CARBIDOPA\LEVODOPA
     Indication: PARKINSON^S DISEASE
     Route: 050
     Dates: start: 20180308

REACTIONS (5)
  - Dysphagia [Unknown]
  - Pneumonia aspiration [Unknown]
  - General physical health deterioration [Unknown]
  - Vomiting [Unknown]
  - Aspiration [Fatal]

NARRATIVE: CASE EVENT DATE: 2020
